FAERS Safety Report 23465447 (Version 1)
Quarter: 2024Q1

REPORT INFORMATION
  Report Type: Spontaneous
  Country: US (occurrence: US)
  Receive Date: 20240201
  Receipt Date: 20240201
  Transmission Date: 20240410
  Serious: No
  Sender: FDA-Public Use
  Company Number: US-BRISTOL-MYERS SQUIBB COMPANY-2024-014991

PATIENT
  Age: 66 Year
  Sex: Female
  Weight: 73.03 kg

DRUGS (1)
  1. ELIQUIS [Suspect]
     Active Substance: APIXABAN
     Indication: Atrial fibrillation
     Route: 048
     Dates: start: 2018

REACTIONS (3)
  - Product contamination physical [Unknown]
  - Product physical issue [Unknown]
  - Eye disorder [Unknown]
